FAERS Safety Report 4365433-0 (Version None)
Quarter: 2004Q2

REPORT INFORMATION
  Report Type: 
  Country: None (occurrence: None)
  Receive Date: 20040525
  Receipt Date: 20040525
  Transmission Date: 20050107
  Serious: Yes (Hospitalization, Other)
  Sender: FDA-Public Use
  Company Number: None

PATIENT
  Age: 70 Year
  Sex: Male
  Weight: 69.4 kg

DRUGS (10)
  1. ZAROXOLYN [Suspect]
     Indication: OEDEMA
     Dosage: DAILY
     Dates: end: 20031229
  2. BUMEX [Concomitant]
  3. ZOCOR [Concomitant]
  4. POTASSIUM [Concomitant]
  5. AGGRENOX [Concomitant]
  6. DIOVAN [Concomitant]
  7. COREG [Concomitant]
  8. TEMAZEPAM [Concomitant]
  9. NITROGLYCERIN [Concomitant]
  10. DIGOXIN [Concomitant]

REACTIONS (5)
  - BLOOD CREATININE INCREASED [None]
  - BLOOD PRESSURE ORTHOSTATIC [None]
  - DIZZINESS [None]
  - DYSPNOEA [None]
  - WEIGHT DECREASED [None]
